FAERS Safety Report 10233692 (Version 1)
Quarter: 2014Q2

REPORT INFORMATION
  Report Type: Spontaneous
  Country: FR (occurrence: FR)
  Receive Date: 20140612
  Receipt Date: 20140612
  Transmission Date: 20141212
  Serious: Yes (Death, Life-Threatening, Hospitalization, Other)
  Sender: FDA-Public Use
  Company Number: FR-PFIZER INC-2014160360

PATIENT
  Age: 87 Year
  Sex: Female

DRUGS (10)
  1. CORDARONE [Suspect]
     Indication: ATRIAL FIBRILLATION
     Dosage: 1 TABLET DAILY
     Route: 048
     Dates: end: 20140123
  2. LASILIX [Suspect]
     Dosage: 20 MG, UNK
     Route: 048
     Dates: start: 20140117
  3. LASILIX [Suspect]
     Dosage: UNK
     Route: 048
     Dates: end: 20140123
  4. TIAPRIDAL [Suspect]
     Dosage: 30 DROPS
     Route: 048
     Dates: start: 20140117
  5. PREVISCAN [Concomitant]
     Dosage: UNK
     Dates: end: 20140201
  6. MIRTAZAPINE [Concomitant]
     Dosage: UNK
     Dates: start: 20140120, end: 20140203
  7. LERCANIDIPINE [Concomitant]
     Dosage: UNK
     Dates: start: 20140124, end: 20140203
  8. BETAHISTINE [Concomitant]
     Dosage: UNK
     Dates: start: 20140117, end: 20140203
  9. ZOLPIDEM TARTRATE [Concomitant]
     Dosage: UNK
     Dates: start: 20130117, end: 20140203
  10. AMLODIPINE [Concomitant]
     Dosage: UNK
     Dates: start: 20140117, end: 20140123

REACTIONS (7)
  - Death [Fatal]
  - Tachypnoea [Unknown]
  - Electrocardiogram QT prolonged [Unknown]
  - Hypotension [Unknown]
  - Bradycardia [Unknown]
  - Liver function test abnormal [Unknown]
  - Renal function test abnormal [Unknown]
